FAERS Safety Report 4264287-0 (Version None)
Quarter: 2004Q1

REPORT INFORMATION
  Report Type: 
  Country: None (occurrence: None)
  Receive Date: 20040102
  Receipt Date: 20031215
  Transmission Date: 20041129
  Serious: Yes (Other)
  Sender: FDA-Public Use
  Company Number: 200314103BCC

PATIENT
  Age: 22 Year
  Sex: Female
  Weight: 57 kg

DRUGS (1)
  1. ALEVE [Suspect]
     Indication: DYSMENORRHOEA
     Dosage: 5280 MG, TOTAL DAILY, ORAL
     Route: 048
     Dates: start: 20031104

REACTIONS (11)
  - ANXIETY [None]
  - EMOTIONAL DISTRESS [None]
  - EYE REDNESS [None]
  - FEAR OF DISEASE [None]
  - FEELING ABNORMAL [None]
  - INCREASED APPETITE [None]
  - INSOMNIA [None]
  - INTENTIONAL OVERDOSE [None]
  - RECTAL HAEMORRHAGE [None]
  - STOMACH DISCOMFORT [None]
  - SUICIDE ATTEMPT [None]
